FAERS Safety Report 25897831 (Version 1)
Quarter: 2025Q4

REPORT INFORMATION
  Report Type: Spontaneous
  Country: US (occurrence: US)
  Receive Date: 20251008
  Receipt Date: 20251008
  Transmission Date: 20260118
  Serious: No
  Sender: CB FLEET
  Company Number: US-PRESTIGE-202411-US-003712

PATIENT
  Sex: Female

DRUGS (1)
  1. MONISTAT 1 COMBINATION PACK [Suspect]
     Active Substance: MICONAZOLE NITRATE
     Indication: Fungal infection
     Dosage: ONCE
     Route: 067

REACTIONS (4)
  - Vulvovaginal burning sensation [Unknown]
  - Vulvovaginal pruritus [Unknown]
  - Vulvovaginal pain [Unknown]
  - Expired product administered [Unknown]
